FAERS Safety Report 18902148 (Version 1)
Quarter: 2021Q1

REPORT INFORMATION
  Report Type: Report from Study
  Country: US (occurrence: US)
  Receive Date: 20210217
  Receipt Date: 20210217
  Transmission Date: 20210420
  Serious: Yes (Hospitalization)
  Sender: FDA-Public Use
  Company Number: US-VIFOR (INTERNATIONAL) INC.-VIT-2021-00601

PATIENT
  Age: 47 Year
  Sex: Male
  Weight: 68 kg

DRUGS (7)
  1. CALCIUM ACETATE. [Concomitant]
     Active Substance: CALCIUM ACETATE
     Indication: HYPERPHOSPHATAEMIA
     Dosage: TAKE SEVERAL DAILY
  2. VELPHORO [Suspect]
     Active Substance: SUCROFERRIC OXYHYDROXIDE
     Dates: start: 20201215, end: 20201218
  3. VENOFER [Suspect]
     Active Substance: IRON SUCROSE
     Indication: PRODUCT USED FOR UNKNOWN INDICATION
     Route: 042
     Dates: end: 20201220
  4. CALCIUM ACETATE. [Concomitant]
     Active Substance: CALCIUM ACETATE
     Indication: HYPERCALCAEMIA
  5. VELPHORO [Suspect]
     Active Substance: SUCROFERRIC OXYHYDROXIDE
     Indication: HYPERPHOSPHATAEMIA
     Dosage: 500 MILLIGRAMS DAILY TABLETS ORDERED WITH MEALS AND SNACKS
     Route: 048
     Dates: start: 20201120, end: 20201215
  6. VENOFER [Suspect]
     Active Substance: IRON SUCROSE
     Route: 042
     Dates: start: 20210123
  7. ARANESP [Concomitant]
     Active Substance: DARBEPOETIN ALFA
     Dates: start: 20201217

REACTIONS (1)
  - Transferrin saturation increased [Recovered/Resolved]

NARRATIVE: CASE EVENT DATE: 20201215
